FAERS Safety Report 14315421 (Version 1)
Quarter: 2017Q4

REPORT INFORMATION
  Report Type: Spontaneous
  Country: PL (occurrence: PL)
  Receive Date: 20171221
  Receipt Date: 20171221
  Transmission Date: 20180321
  Serious: Yes (Other)
  Sender: FDA-Public Use
  Company Number: PL-MYLANLABS-2017M1079945

PATIENT
  Age: 30 Year
  Sex: Male

DRUGS (2)
  1. DOXORUBICIN [Suspect]
     Active Substance: DOXORUBICIN
     Indication: SARCOMA
     Dosage: 60 MG/M2, UNK
     Dates: start: 20130410, end: 20130525
  2. CISPLATIN. [Suspect]
     Active Substance: CISPLATIN
     Indication: SARCOMA
     Dosage: 90 MG/M2, UNK
     Dates: start: 20130410, end: 20130525

REACTIONS (3)
  - Disease progression [Recovered/Resolved]
  - Metastases to lung [Recovered/Resolved]
  - Neoplasm [Recovered/Resolved]
